FAERS Safety Report 11992033 (Version 1)
Quarter: 2016Q1

REPORT INFORMATION
  Report Type: Spontaneous
  Country: US (occurrence: US)
  Receive Date: 20160203
  Receipt Date: 20160203
  Transmission Date: 20160526
  Serious: No
  Sender: FDA-Public Use
  Company Number: US-JNJFOC-20151209223

PATIENT
  Age: 76 Year
  Sex: Female
  Weight: 61.24 kg

DRUGS (3)
  1. TYLENOL EXTRA STRENGTH [Suspect]
     Active Substance: ACETAMINOPHEN
     Indication: ABDOMINAL PAIN UPPER
     Dosage: PATIENT TOOK 2 CAPLETS 1 TIME ON 2 DIFFERENT DAYS
     Route: 048
  2. TYLENOL EXTRA STRENGTH [Suspect]
     Active Substance: ACETAMINOPHEN
     Indication: ARTHRITIS
     Dosage: PATIENT TOOK 2 CAPLETS 1 TIME ON 2 DIFFERENT DAYS
     Route: 048
  3. PREVACID [Concomitant]
     Active Substance: LANSOPRAZOLE
     Indication: GASTROOESOPHAGEAL REFLUX DISEASE
     Dosage: PRN LONG TIME
     Route: 065

REACTIONS (3)
  - Off label use [Recovered/Resolved]
  - Headache [Recovered/Resolved]
  - Product use issue [Recovered/Resolved]
